FAERS Safety Report 21877159 (Version 1)
Quarter: 2023Q1

REPORT INFORMATION
  Report Type: Spontaneous
  Country: LT (occurrence: LT)
  Receive Date: 20230118
  Receipt Date: 20230118
  Transmission Date: 20230417
  Serious: Yes (Death, Hospitalization)
  Sender: FDA-Public Use
  Company Number: None

PATIENT

DRUGS (3)
  1. ZOLADEX [Suspect]
     Active Substance: GOSERELIN ACETATE
     Indication: Prostate cancer
     Dosage: UNK
     Route: 065
     Dates: end: 20220624
  2. ZOLADEX [Suspect]
     Active Substance: GOSERELIN ACETATE
     Indication: Prostate cancer
     Dosage: UNK
     Route: 065
  3. CARDURA XL [Concomitant]
     Active Substance: DOXAZOSIN MESYLATE
     Indication: Micturition disorder
     Dosage: 1 DOSAGE FORM, QD
     Route: 065
     Dates: end: 20220624

REACTIONS (10)
  - Hallucination [Fatal]
  - Delirium [Fatal]
  - Psychotic disorder [Fatal]
  - Back pain [Fatal]
  - Thinking abnormal [Fatal]
  - Pain in extremity [Fatal]
  - Arthralgia [Fatal]
  - Personality change [Fatal]
  - Peripheral coldness [Fatal]
  - Burning sensation [Fatal]

NARRATIVE: CASE EVENT DATE: 20220624
